FAERS Safety Report 12596159 (Version 1)
Quarter: 2016Q3

REPORT INFORMATION
  Report Type: Report from Study
  Country: US (occurrence: US)
  Receive Date: 20160726
  Receipt Date: 20160726
  Transmission Date: 20161109
  Serious: No
  Sender: FDA-Public Use
  Company Number: US-AMGEN-USASL2016079813

PATIENT
  Age: 67 Year
  Sex: Male

DRUGS (2)
  1. KYPROLIS [Suspect]
     Active Substance: CARFILZOMIB
     Dosage: 37 UNK, UNK
  2. KYPROLIS [Suspect]
     Active Substance: CARFILZOMIB
     Indication: PRODUCT USED FOR UNKNOWN INDICATION
     Dosage: 60 UNK, (TWICE WEEKLY FOR 3 WEEKS AND THEN TAKES 1 WEEK OFF)
     Route: 065

REACTIONS (1)
  - Chest pain [Recovering/Resolving]
